FAERS Safety Report 21762960 (Version 1)
Quarter: 2022Q4

REPORT INFORMATION
  Report Type: Spontaneous
  Country: US (occurrence: None)
  Receive Date: 20221220
  Receipt Date: 20221220
  Transmission Date: 20230113
  Serious: No
  Sender: FDA-Public Use
  Company Number: None

PATIENT
  Sex: Male

DRUGS (1)
  1. HUMIRA [Suspect]
     Active Substance: ADALIMUMAB
     Indication: Rheumatoid arthritis
     Dosage: FREQUENCY : EVERY OTHER WEEK;?
     Route: 058
     Dates: start: 20221126

REACTIONS (8)
  - Pruritus [None]
  - Burning sensation [None]
  - Condition aggravated [None]
  - Arthralgia [None]
  - Therapy non-responder [None]
  - Arthralgia [None]
  - Joint swelling [None]
  - Gait disturbance [None]
